FAERS Safety Report 8302236-6 (Version None)
Quarter: 2012Q1

REPORT INFORMATION
  Report Type: 
  Country: None (occurrence: None)
  Receive Date: 20120326
  Receipt Date: 20100413
  Transmission Date: 20120608
  Serious: Yes (Hospitalization)
  Sender: FDA-Public Use
  Company Number: PHEH2010US01445

PATIENT
  Sex: Female
  Weight: 70.3 kg

DRUGS (1)
  1. VIVELLE-DOT [Suspect]
     Dosage: 0.1 MG PER DAY, TRANSDERMAL
     Route: 062

REACTIONS (3)
  - RASH [None]
  - HYPERSENSITIVITY [None]
  - ANAPHYLACTIC REACTION [None]
